FAERS Safety Report 15545376 (Version 1)
Quarter: 2018Q4

REPORT INFORMATION
  Report Type: Spontaneous
  Country: US (occurrence: US)
  Receive Date: 20181017
  Receipt Date: 20181017
  Transmission Date: 20190205
  Serious: No
  Sender: FDA-Public Use
  Company Number: None

PATIENT
  Age: 64 Year
  Sex: Female

DRUGS (1)
  1. PROLIA [Suspect]
     Active Substance: DENOSUMAB
     Route: 058
     Dates: start: 20181002

REACTIONS (4)
  - Fatigue [None]
  - Dry mouth [None]
  - Cough [None]
  - Headache [None]

NARRATIVE: CASE EVENT DATE: 20181016
